FAERS Safety Report 8072014-4 (Version None)
Quarter: 2012Q1

REPORT INFORMATION
  Report Type: 
  Country: None (occurrence: None)
  Receive Date: 20120124
  Receipt Date: 20120124
  Transmission Date: 20120608
  Serious: Yes (Hospitalization)
  Sender: FDA-Public Use
  Company Number: None

PATIENT
  Sex: Female
  Weight: 70.6 kg

DRUGS (1)
  1. RECLAST [Suspect]
     Indication: OSTEOPOROSIS
     Dosage: YEARLY 042 (INTRAVENOUS)
     Dates: start: 20111202

REACTIONS (3)
  - DYSPNOEA [None]
  - CHEST PAIN [None]
  - NAUSEA [None]
